FAERS Safety Report 9053866 (Version 1)
Quarter: 2013Q1

REPORT INFORMATION
  Report Type: Spontaneous
  Country: US (occurrence: None)
  Receive Date: 20130130
  Receipt Date: 20130130
  Transmission Date: 20140127
  Serious: No
  Sender: FDA-Public Use
  Company Number: None

PATIENT
  Age: 60 Year
  Sex: Female

DRUGS (1)
  1. ADVAIR DISKUS [Suspect]
     Indication: ASTHMA
     Dosage: USE ONE INHALATION TWO TIMES A DAY

REACTIONS (1)
  - Foreign body [None]
